FAERS Safety Report 8905600 (Version 1)
Quarter: 2012Q4

REPORT INFORMATION
  Report Type: 
  Country: GB (occurrence: GB)
  Receive Date: 20121113
  Receipt Date: 20121113
  Transmission Date: 20130627
  Serious: Yes (Hospitalization)
  Sender: FDA-Public Use
  Company Number: GB-TEVA-368005ISR

PATIENT
  Age: 65 Year
  Sex: Female

DRUGS (3)
  1. LANSOPRAZOLE [Suspect]
     Indication: EPIGASTRIC DISCOMFORT
     Route: 048
     Dates: start: 20121011, end: 20121019
  2. BENDROFLUMETHIAZIDE [Concomitant]
  3. LISINOPRIL [Concomitant]

REACTIONS (3)
  - Hepatitis [Recovering/Resolving]
  - Abdominal pain [Unknown]
  - Liver function test abnormal [Unknown]
